FAERS Safety Report 5738567-3 (Version None)
Quarter: 2008Q2

REPORT INFORMATION
  Report Type: 
  Country: None (occurrence: None)
  Receive Date: 20080514
  Receipt Date: 20080514
  Transmission Date: 20081010
  Serious: Yes (Death, Life-Threatening, Hospitalization)
  Sender: FDA-Public Use
  Company Number: None

PATIENT
  Age: 78 Year
  Sex: Female
  Weight: 72.5755 kg

DRUGS (1)
  1. DIGITEK [Suspect]

REACTIONS (5)
  - DIZZINESS [None]
  - DYSURIA [None]
  - ORGAN FAILURE [None]
  - RENAL DISORDER [None]
  - SWELLING [None]
